FAERS Safety Report 4860955-8 (Version None)
Quarter: 2005Q4

REPORT INFORMATION
  Report Type: 
  Country: None (occurrence: None)
  Receive Date: 20051220
  Receipt Date: 20051208
  Transmission Date: 20060501
  Serious: Yes (Other)
  Sender: FDA-Public Use
  Company Number: DE-BRISTOL-MYERS SQUIBB COMPANY-13213970

PATIENT
  Age: 59 Year
  Sex: Female

DRUGS (3)
  1. CARBOPLATIN [Suspect]
     Indication: OVARIAN CANCER
  2. TAXOL [Suspect]
     Indication: OVARIAN CANCER
  3. ERYPO [Suspect]
     Indication: HAEMOGLOBIN DECREASED
     Route: 058

REACTIONS (7)
  - ANAEMIA [None]
  - ASCITES [None]
  - ATELECTASIS [None]
  - CATHETER RELATED INFECTION [None]
  - GENERAL PHYSICAL CONDITION ABNORMAL [None]
  - PLEURAL EFFUSION [None]
  - PYREXIA [None]
